FAERS Safety Report 19124977 (Version 1)
Quarter: 2021Q2

REPORT INFORMATION
  Report Type: Spontaneous
  Country: RU (occurrence: RU)
  Receive Date: 20210413
  Receipt Date: 20210413
  Transmission Date: 20210717
  Serious: Yes (Hospitalization)
  Sender: FDA-Public Use
  Company Number: RU-ASTRAZENECA-2021A277706

PATIENT
  Age: 2 Year
  Sex: Male

DRUGS (1)
  1. PULMICORT TURBUHALER [Suspect]
     Active Substance: BUDESONIDE
     Indication: ASTHMA
     Dosage: 0.25MG/ML UNKNOWN
     Route: 055

REACTIONS (4)
  - Vomiting [Unknown]
  - Overdose [Unknown]
  - Nausea [Unknown]
  - Intentional product misuse [Unknown]
